FAERS Safety Report 7910473-5 (Version None)
Quarter: 2011Q4

REPORT INFORMATION
  Report Type: 
  Country: None (occurrence: None)
  Receive Date: 20111111
  Receipt Date: 20111104
  Transmission Date: 20120403
  Serious: Yes (Hospitalization, Other)
  Sender: FDA-Public Use
  Company Number: PHHY2011CA67374

PATIENT
  Sex: Female

DRUGS (16)
  1. CLONAZEPAM [Concomitant]
     Dosage: UNK UKN, UNK
  2. GILENYA [Suspect]
     Indication: RELAPSING-REMITTING MULTIPLE SCLEROSIS
     Dosage: 0.5 MG,
     Route: 048
     Dates: start: 20110721, end: 20110729
  3. MAXERAN [Concomitant]
     Dosage: UNK UKN, UNK
  4. RELPAX [Concomitant]
     Dosage: UNK UKN, UNK
  5. INDERAL [Concomitant]
     Dosage: UNK UKN, UNK
  6. VITAMIN D [Concomitant]
     Dosage: UNK UKN, UNK
  7. CLARITIN [Concomitant]
     Dosage: UNK UKN, UNK
  8. CYMBALTA [Concomitant]
     Dosage: UNK UKN, UNK
  9. ELAVIL [Concomitant]
     Dosage: UNK UKN, UNK
  10. COLACE [Concomitant]
     Dosage: UNK UKN, UNK
  11. FLEXERIL [Concomitant]
     Dosage: UNK UKN, UNK
  12. SENOKOT                                 /UNK/ [Concomitant]
     Dosage: UNK UKN, UNK
  13. SYNTHROID [Concomitant]
     Dosage: UNK UKN, UNK
  14. PANTOPRAZOLE SODIUM [Concomitant]
     Dosage: UNK UKN, UNK
  15. NASONEX [Concomitant]
     Dosage: UNK UKN, UNK
  16. MIRENA [Concomitant]
     Dosage: UNK UKN, UNK

REACTIONS (3)
  - DIZZINESS [None]
  - RENAL CANCER [None]
  - FATIGUE [None]
